FAERS Safety Report 5264356-2 (Version None)
Quarter: 2007Q1

REPORT INFORMATION
  Report Type: 
  Country: None (occurrence: None)
  Receive Date: 20070309
  Receipt Date: 20070305
  Transmission Date: 20070707
  Serious: Yes (Disabling)
  Sender: FDA-Public Use
  Company Number: 2006S1000011

PATIENT
  Age: 19 Day
  Sex: Male

DRUGS (11)
  1. NITRIC OXIDE [Suspect]
     Indication: LUNG DISORDER
     Dosage: 5 PPM; INH_GAS; INH
     Route: 055
     Dates: start: 20051216, end: 20060106
  2. NITRIC OXIDE [Suspect]
     Indication: PROPHYLAXIS
     Dosage: 5 PPM; INH_GAS; INH
     Route: 055
     Dates: start: 20051216, end: 20060106
  3. GENTAMICIN [Concomitant]
  4. DEXAMETHASONE TAB [Concomitant]
  5. CEFTAZIDIME [Concomitant]
  6. CAFFEINE (CAFFEINE) [Concomitant]
  7. ACETYLCYSTEINE [Concomitant]
  8. SODIUM BICARBONATE IN PLASTIC CONTAINER [Concomitant]
  9. CHLORAL HYDRATE (CHLORAL HYDRATE) [Concomitant]
  10. ACETAMINOPHEN [Concomitant]
  11. SALINE (SODIUM CHLORIDE) [Concomitant]

REACTIONS (6)
  - CONDITION AGGRAVATED [None]
  - LARYNGEAL OEDEMA [None]
  - LARYNGEAL STENOSIS [None]
  - OXYGEN CONSUMPTION INCREASED [None]
  - RESPIRATORY DISTRESS [None]
  - STRIDOR [None]
